FAERS Safety Report 8462766-3 (Version None)
Quarter: 2012Q2

REPORT INFORMATION
  Report Type: 
  Country: None (occurrence: None)
  Receive Date: 20120618
  Receipt Date: 20120618
  Transmission Date: 20120825
  Serious: Yes (Death)
  Sender: FDA-Public Use
  Company Number: None

PATIENT
  Age: 53 Year
  Sex: Male
  Weight: 123 kg

DRUGS (3)
  1. OMEPRAZOLE 40MG PO DAILY [Concomitant]
  2. MULTIVITAMIN DAILY [Concomitant]
  3. DABIGATRAN 150MG BOEHRINGER INGELHEIM [Suspect]
     Indication: ATRIAL FIBRILLATION
     Dosage: 150MG BID PO
     Route: 048
     Dates: start: 20110907, end: 20120517

REACTIONS (2)
  - CEREBRAL ARTERY OCCLUSION [None]
  - BRAIN OEDEMA [None]
